FAERS Safety Report 9760217 (Version 1)
Quarter: 2013Q4

REPORT INFORMATION
  Report Type: Spontaneous
  Country: US (occurrence: US)
  Receive Date: 20131216
  Receipt Date: 20131216
  Transmission Date: 20140711
  Serious: No
  Sender: FDA-Public Use
  Company Number: US-PFIZER INC-2013359110

PATIENT
  Age: 47 Year
  Sex: Female
  Weight: 78.46 kg

DRUGS (4)
  1. LYRICA [Suspect]
     Indication: FIBROMYALGIA
     Dosage: 150 MG, 3X/DAY
     Dates: start: 2010
  2. ELAVIL [Concomitant]
     Indication: BLADDER DISORDER
     Dosage: 50MG DAILY AT NIGHT
  3. ACETAMINOPHEN [Concomitant]
     Indication: ARTHRALGIA
     Dosage: 1000 MG, AS NEEDED
  4. PERCOCET [Concomitant]
     Indication: ARTHRALGIA
     Dosage: UNK, AS NEEDED

REACTIONS (3)
  - Tremor [Unknown]
  - Pyrexia [Not Recovered/Not Resolved]
  - Drug effect incomplete [Unknown]
